FAERS Safety Report 7953721-8 (Version None)
Quarter: 2011Q4

REPORT INFORMATION
  Report Type: 
  Country: None (occurrence: None)
  Receive Date: 20111202
  Receipt Date: 20111118
  Transmission Date: 20120403
  Serious: Yes (Hospitalization, Other)
  Sender: FDA-Public Use
  Company Number: IT-PFIZER INC-2011278040

PATIENT
  Age: 66 Year
  Sex: Male

DRUGS (7)
  1. DICLOFENAC [Suspect]
     Indication: ARTHRALGIA
     Dosage: UNK
     Route: 048
     Dates: start: 20050501, end: 20050507
  2. DOMPERIDONE [Concomitant]
     Route: 048
  3. SIMVASTATIN [Concomitant]
     Route: 048
  4. PANTOPRAZOLE SODIUM [Concomitant]
  5. TERAZOSIN HYDROCHLORIDE [Concomitant]
     Route: 048
  6. BOSWELLIA SERRATA EXTRACT [Concomitant]
  7. IBUPROFEN [Suspect]
     Dosage: UNK
     Route: 048
     Dates: start: 20050501, end: 20050507

REACTIONS (1)
  - ACUTE HEPATIC FAILURE [None]
